FAERS Safety Report 9908265 (Version 1)
Quarter: 2014Q1

REPORT INFORMATION
  Report Type: Spontaneous
  Country: US (occurrence: None)
  Receive Date: 20140214
  Receipt Date: 20140214
  Transmission Date: 20141002
  Serious: Yes (Other)
  Sender: FDA-Public Use
  Company Number: None

PATIENT
  Age: 1 Year
  Sex: Male

DRUGS (1)
  1. AMOXICILLIN [Suspect]
     Dosage: SUSPENSION

REACTIONS (3)
  - Abdominal pain upper [None]
  - Diarrhoea [None]
  - Medication error [None]
